FAERS Safety Report 6540828-5 (Version None)
Quarter: 2010Q1

REPORT INFORMATION
  Report Type: 
  Country: None (occurrence: None)
  Receive Date: 20100118
  Receipt Date: 20100113
  Transmission Date: 20100710
  Serious: Yes (Hospitalization)
  Sender: FDA-Public Use
  Company Number: DE-ROCHE-679609

PATIENT
  Sex: Female
  Weight: 99 kg

DRUGS (2)
  1. CAPECITABINE [Suspect]
     Route: 048
     Dates: start: 20091121, end: 20091217
  2. TYVERB [Suspect]
     Route: 048
     Dates: start: 20091123, end: 20091221

REACTIONS (1)
  - PNEUMOCYSTIS JIROVECI PNEUMONIA [None]
